FAERS Safety Report 10406262 (Version 2)
Quarter: 2014Q4

REPORT INFORMATION
  Report Type: Spontaneous
  Country: US (occurrence: None)
  Receive Date: 20140821
  Receipt Date: 20141024
  Transmission Date: 20150528
  Serious: Yes (Other)
  Sender: FDA-Public Use
  Company Number: 2014-US-010050

PATIENT
  Age: 60 Year
  Sex: Female
  Weight: 67.1 kg

DRUGS (18)
  1. VOLTAREN (DICLOFENAC POTASSIUM) [Concomitant]
  2. XYREM [Suspect]
     Active Substance: SODIUM OXYBATE
     Indication: NARCOLEPSY
     Route: 048
     Dates: start: 201207, end: 2012
  3. MULTIVITAMIN(VITMAINS NOS) [Concomitant]
  4. XYREM [Suspect]
     Active Substance: SODIUM OXYBATE
     Indication: SOMNOLENCE
     Route: 048
     Dates: start: 201207, end: 2012
  5. FLECTOR(DICLOFENAC POTASSIUM) [Concomitant]
  6. PROVIGIL(MODAFINIL) [Concomitant]
  7. CLARITIN (GLICLAZIDE) [Concomitant]
     Active Substance: GLICLAZIDE
  8. ADDERALL XR (AMFETAMINE ASPARATE, AMFETAMINE SULFATE, DEXAMFETAMINE SACCHARATE, DEXAMFETAMINE SULFATE) [Concomitant]
  9. HYDROCODONE/ACETAMINOPHEN(HYDROCODONE, PARACETAMOL) [Concomitant]
  10. FLUOXETINE(FLUOXETINE) [Concomitant]
  11. CALCIUM/VITAMIN D (CALCIUM, ERGOCALCIFEROL) [Concomitant]
  12. NIFEDIPINE(NIFEDIPINE) [Concomitant]
  13. METHYLPREDNISOLONE(METHYLPREDNISOLONE) [Concomitant]
  14. MELOXICAM(MELOXICAM) [Concomitant]
  15. CELEXA(CITALOPRAM HYDROBROMIDE) [Concomitant]
  16. AMPHTAMINE SALTS (AMPHETAMINE/DEXTROAMPHETAMINE) [Concomitant]
  17. SYNTHROID(LEVOTHYROXINE SODIUM) [Concomitant]
  18. INFLUENZA VACCINE (INFLUENZA VACCINE) (INFLUENZA VACCINE) [Concomitant]
     Active Substance: INFLUENZA VIRUS VACCINE

REACTIONS (7)
  - Connective tissue disorder [None]
  - Sinusitis [None]
  - Pulmonary mass [None]
  - Essential hypertension [None]
  - Osteoarthritis [None]
  - Arrhythmia [None]
  - Skin papilloma [None]

NARRATIVE: CASE EVENT DATE: 201308
